FAERS Safety Report 13609397 (Version 1)
Quarter: 2017Q2

REPORT INFORMATION
  Report Type: Spontaneous
  Country: IL (occurrence: IL)
  Receive Date: 20170602
  Receipt Date: 20170602
  Transmission Date: 20170830
  Serious: Yes (Other)
  Sender: FDA-Public Use
  Company Number: IL-009507513-1706ISR000316

PATIENT
  Age: 23 Year

DRUGS (1)
  1. KEYTRUDA [Suspect]
     Active Substance: PEMBROLIZUMAB
     Dosage: 10 MG/KG, UNK

REACTIONS (2)
  - Osteomyelitis chronic [Unknown]
  - Product use issue [Unknown]
